FAERS Safety Report 11777507 (Version 2)
Quarter: 2015Q4

REPORT INFORMATION
  Report Type: Report from Study
  Country: US (occurrence: US)
  Receive Date: 20151125
  Receipt Date: 20151228
  Transmission Date: 20160304
  Serious: Yes (Hospitalization)
  Sender: FDA-Public Use
  Company Number: US-VERTEX PHARMACEUTICALS-2015-005405

PATIENT
  Age: 16 Year
  Sex: Female

DRUGS (17)
  1. FLONASE [Concomitant]
     Active Substance: FLUTICASONE PROPIONATE
  2. ORKAMBI [Suspect]
     Active Substance: IVACAFTOR\LUMACAFTOR
     Indication: CYSTIC FIBROSIS
     Dosage: UNK
     Route: 048
     Dates: start: 20151109
  3. MIRALAX [Concomitant]
     Active Substance: POLYETHYLENE GLYCOL 3350
  4. CAYSTON [Concomitant]
     Active Substance: AZTREONAM
  5. ACIDOPHILUS [Concomitant]
     Active Substance: LACTOBACILLUS ACIDOPHILUS
  6. PULMOZYME [Concomitant]
     Active Substance: DORNASE ALFA
  7. SINGULAIR [Concomitant]
     Active Substance: MONTELUKAST SODIUM
  8. ADVAIR HFA [Concomitant]
     Active Substance: FLUTICASONE PROPIONATE\SALMETEROL XINAFOATE
  9. ALBUTEROL. [Concomitant]
     Active Substance: ALBUTEROL
  10. VITAMAX [Concomitant]
  11. ORKAMBI [Suspect]
     Active Substance: IVACAFTOR\LUMACAFTOR
     Dosage: 1 PILL, BID
     Route: 048
     Dates: start: 20151114
  12. DOXYCYCLINE. [Concomitant]
     Active Substance: DOXYCYCLINE
  13. CREON [Concomitant]
     Active Substance: PANCRELIPASE AMYLASE\PANCRELIPASE LIPASE\PANCRELIPASE PROTEASE
  14. ATROVENT [Concomitant]
     Active Substance: IPRATROPIUM BROMIDE
  15. SODIUM CHLORIDE. [Concomitant]
     Active Substance: SODIUM CHLORIDE
  16. ORKAMBI [Suspect]
     Active Substance: IVACAFTOR\LUMACAFTOR
     Dosage: 2 DF, BID
     Route: 048
     Dates: start: 20151123
  17. VITAMIN D [Concomitant]
     Active Substance: CHOLECALCIFEROL

REACTIONS (3)
  - Nausea [Unknown]
  - Constipation [Recovering/Resolving]
  - Vomiting [Unknown]

NARRATIVE: CASE EVENT DATE: 20151112
